FAERS Safety Report 22814240 (Version 5)
Quarter: 2023Q4

REPORT INFORMATION
  Report Type: Report from Study
  Country: US (occurrence: US)
  Receive Date: 20230811
  Receipt Date: 20231010
  Transmission Date: 20240109
  Serious: Yes (Other)
  Sender: FDA-Public Use
  Company Number: US-002147023-NVSC2023US172603

PATIENT
  Sex: Female

DRUGS (3)
  1. TRIAMCINOLONE [Suspect]
     Active Substance: TRIAMCINOLONE
     Indication: Psoriasis
     Dosage: UNK
     Route: 065
  2. OXICONAZOLE [Suspect]
     Active Substance: OXICONAZOLE
     Indication: Psoriasis
     Dosage: UNK
     Route: 065
  3. CLOBETASOL [Suspect]
     Active Substance: CLOBETASOL
     Indication: Psoriasis
     Dosage: UNK (AS DIRECTED)
     Route: 065

REACTIONS (8)
  - Squamous cell carcinoma [Unknown]
  - Neoplasm [Unknown]
  - Actinic keratosis [Unknown]
  - Hyperkeratosis [Unknown]
  - Rash pruritic [Unknown]
  - Skin exfoliation [Unknown]
  - Arthralgia [Unknown]
  - Drug ineffective [Unknown]
